FAERS Safety Report 16964356 (Version 2)
Quarter: 2022Q3

REPORT INFORMATION
  Report Type: Spontaneous
  Country: US (occurrence: US)
  Receive Date: 20191027
  Receipt Date: 20220823
  Transmission Date: 20221026
  Serious: No
  Sender: FDA-Public Use
  Company Number: US-ARBOR PHARMACEUTICALS, LLC-US-2019ARB001259

PATIENT
  Age: 7 Year
  Sex: Female

DRUGS (4)
  1. TRIPTODUR [Suspect]
     Active Substance: TRIPTORELIN
     Indication: Puberty
     Dosage: UNK, SINGLE
     Route: 065
     Dates: start: 20190815, end: 20190815
  2. TRIPTODUR [Suspect]
     Active Substance: TRIPTORELIN
     Dosage: UNK, SINGLE (Q6M)
     Route: 030
     Dates: start: 20220209, end: 20220209
  3. TRIPTODUR [Suspect]
     Active Substance: TRIPTORELIN
  4. TRIPTODUR [Suspect]
     Active Substance: TRIPTORELIN

REACTIONS (6)
  - Incorrect dose administered [Unknown]
  - Drug delivery system malfunction [Unknown]
  - Product administration error [Unknown]
  - Needle issue [Recovered/Resolved]
  - Product administration interrupted [Recovered/Resolved]
  - Liquid product physical issue [Recovered/Resolved]

NARRATIVE: CASE EVENT DATE: 20190815
